FAERS Safety Report 17974511 (Version 5)
Quarter: 2020Q3

REPORT INFORMATION
  Report Type: Spontaneous
  Country: US (occurrence: US)
  Receive Date: 20200702
  Receipt Date: 20200806
  Transmission Date: 20201103
  Serious: No
  Sender: FDA-Public Use
  Company Number: US-PFIZER INC-2020253686

PATIENT
  Age: 55 Year
  Sex: Female

DRUGS (3)
  1. XANAX [Concomitant]
     Active Substance: ALPRAZOLAM
     Dosage: UNK
  2. NARDIL [Suspect]
     Active Substance: PHENELZINE SULFATE
     Indication: ANXIETY
     Dosage: 15 MG, 2X/DAY
     Dates: end: 2020
  3. NARDIL [Suspect]
     Active Substance: PHENELZINE SULFATE
     Indication: PANIC ATTACK
     Dosage: 15 MG, 3X/DAY
     Route: 048
     Dates: start: 202007

REACTIONS (1)
  - Intentional dose omission [Unknown]

NARRATIVE: CASE EVENT DATE: 2020
